FAERS Safety Report 9038398 (Version 1)
Quarter: 2013Q1

REPORT INFORMATION
  Report Type: Spontaneous
  Country: PR (occurrence: PR)
  Receive Date: 20130130
  Receipt Date: 20130130
  Transmission Date: 20140127
  Serious: Yes (Other)
  Sender: FDA-Public Use
  Company Number: PR-ABBOTT-12P-131-0933668-00

PATIENT
  Sex: Female
  Weight: 89.89 kg

DRUGS (8)
  1. HUMIRA 40 MG/0.8 ML PEN [Suspect]
     Indication: RHEUMATOID ARTHRITIS
     Route: 058
     Dates: start: 2006, end: 20120501
  2. HUMIRA 40 MG/0.8 ML PEN [Suspect]
     Route: 058
     Dates: start: 20120609
  3. VITAMIN D [Concomitant]
     Indication: OSTEOARTHRITIS
     Dosage: 10,000 WEEKLY
     Route: 048
     Dates: start: 201204
  4. VITAMIN D [Concomitant]
     Indication: OSTEOPENIA
  5. SINGULAIR [Concomitant]
     Indication: ASTHMA
     Route: 048
     Dates: start: 2002
  6. FIORICET [Concomitant]
     Indication: MIGRAINE
     Route: 048
     Dates: start: 1992
  7. FLEXERIL [Concomitant]
     Indication: MIGRAINE
     Route: 048
     Dates: start: 1992
  8. ZOCOR [Concomitant]
     Indication: HYPERCHOLESTEROLAEMIA
     Route: 048
     Dates: start: 2002

REACTIONS (2)
  - Cholecystitis [Recovered/Resolved]
  - Hypertension [Recovering/Resolving]
